FAERS Safety Report 8838543 (Version 1)
Quarter: 2012Q4

REPORT INFORMATION
  Report Type: 
  Country: US (occurrence: US)
  Receive Date: 20121012
  Receipt Date: 20121012
  Transmission Date: 20130627
  Serious: Yes (Hospitalization)
  Sender: FDA-Public Use
  Company Number: US-JNJFOC-20121003119

PATIENT
  Age: 75 Year
  Sex: Male

DRUGS (3)
  1. ZYTIGA [Suspect]
     Indication: PROSTATE CANCER METASTATIC
     Route: 048
     Dates: start: 20120710
  2. PREDNISONE [Suspect]
     Indication: PROSTATE CANCER METASTATIC
     Route: 048
     Dates: start: 20120710
  3. CITALOPRAM [Interacting]
     Indication: PRODUCT USED FOR UNKNOWN INDICATION
     Route: 065

REACTIONS (8)
  - Pleural effusion [Unknown]
  - Interstitial lung disease [Unknown]
  - Mental status changes [Unknown]
  - Drug interaction [Unknown]
  - Cardiomegaly [Unknown]
  - Cardiac failure congestive [Unknown]
  - Oedema peripheral [Unknown]
  - Pneumonia [Unknown]
